FAERS Safety Report 5412006-4 (Version None)
Quarter: 2007Q3

REPORT INFORMATION
  Report Type: 
  Country: None (occurrence: None)
  Receive Date: 20070809
  Receipt Date: 20070801
  Transmission Date: 20080115
  Serious: Yes (Death)
  Sender: FDA-Public Use
  Company Number: S07-USA-03312-01

PATIENT
  Age: 68 Year
  Sex: Male

DRUGS (5)
  1. CITALOPRAM [Suspect]
     Indication: ANXIETY
     Dosage: 20 MG QD PO
     Route: 048
     Dates: start: 20070719, end: 20070725
  2. CITALOPRAM [Suspect]
     Indication: DEPRESSION
     Dosage: 20 MG QD PO
     Route: 048
     Dates: start: 20070719, end: 20070725
  3. CITALOPRAM [Suspect]
     Indication: ANXIETY
     Dosage: 10 MG QD PO
     Route: 048
     Dates: start: 20070726, end: 20070727
  4. CITALOPRAM [Suspect]
     Indication: DEPRESSION
     Dosage: 10 MG QD PO
     Route: 048
     Dates: start: 20070726, end: 20070727
  5. TOPROL-XL [Concomitant]

REACTIONS (6)
  - COMPLETED SUICIDE [None]
  - CONSTIPATION [None]
  - DECREASED APPETITE [None]
  - GUN SHOT WOUND [None]
  - SOMNOLENCE [None]
  - TREATMENT NONCOMPLIANCE [None]
